FAERS Safety Report 9090935 (Version 1)
Quarter: 2013Q1

REPORT INFORMATION
  Report Type: Spontaneous
  Country: DK (occurrence: DK)
  Receive Date: 20130131
  Receipt Date: 20130131
  Transmission Date: 20140127
  Serious: Yes (Death, Life-Threatening, Hospitalization)
  Sender: FDA-Public Use
  Company Number: DK-ROCHE-1181926

PATIENT
  Age: 32 Year
  Sex: Female
  Weight: 83 kg

DRUGS (13)
  1. RIVOTRIL [Suspect]
     Indication: PSYCHOTIC DISORDER
     Route: 048
     Dates: start: 19940810, end: 20050714
  2. RISPERDAL CONSTA [Suspect]
     Indication: SCHIZOPHRENIA
     Route: 030
     Dates: start: 20050706, end: 20050714
  3. RISPERDAL [Suspect]
     Indication: SCHIZOPHRENIA
     Dosage: DOSIS: 2 MG 3 GANGE DAGLIGT?STYRKE: 2 MILLIGRAM(S)
     Route: 048
     Dates: start: 20050706, end: 20050714
  4. ORAP [Suspect]
     Indication: PSYCHOTIC DISORDER
     Dosage: 6 MILLIGRAM(S)
     Route: 048
     Dates: start: 19921014, end: 20050714
  5. SEROQUEL [Suspect]
     Indication: PSYCHOTIC DISORDER
     Dosage: DOSIS: 450 MG DAGLIG
     Route: 048
     Dates: start: 19921122, end: 20050714
  6. DISIPAL [Suspect]
     Indication: ADVERSE DRUG REACTION
     Route: 048
     Dates: start: 19990714, end: 20050714
  7. TRUXAL [Suspect]
     Indication: PSYCHOTIC DISORDER
     Dosage: DOSIS: 50-100 MG EFTER BEHOV H?JST 250 MG PR. D?GN
     Route: 048
     Dates: start: 19980712, end: 20050714
  8. PANTOLOC [Concomitant]
     Indication: GASTRIC ULCER
     Dosage: 40 MILLIGRAM(S)
     Route: 048
     Dates: start: 19990815, end: 20050714
  9. NOVYNETTE [Concomitant]
     Route: 048
  10. GAVISCON (ALGINIC ACID/SODIUM BICARBONATE) [Concomitant]
     Dosage: 15 ML AS NEEDED NO MORE THAN 3 TIMES DAILY
     Route: 048
  11. OXAZEPAM [Concomitant]
     Dosage: 15 MG AS NEEDED NO MORE THAN 4 TIMES DAILY
     Route: 065
  12. PRIMPERAN SUPPOSITORIES [Concomitant]
     Dosage: 20 MG AS NEEDED NO MORE THAN 2 TIMES DAILY
     Route: 054
  13. PINEX [Concomitant]
     Dosage: 1 GRAM AS NEEDED NO MORE THAN 3 TIMES DAILY
     Route: 048

REACTIONS (8)
  - Sudden death [Fatal]
  - Convulsion [Not Recovered/Not Resolved]
  - Neuroleptic malignant syndrome [Not Recovered/Not Resolved]
  - Vomiting [Not Recovered/Not Resolved]
  - Weight increased [Not Recovered/Not Resolved]
  - Hallucination [Not Recovered/Not Resolved]
  - Restlessness [Not Recovered/Not Resolved]
  - Sleep disorder [Not Recovered/Not Resolved]
